FAERS Safety Report 21419763 (Version 1)
Quarter: 2022Q4

REPORT INFORMATION
  Report Type: Report from Study
  Country: CA (occurrence: CA)
  Receive Date: 20221006
  Receipt Date: 20221006
  Transmission Date: 20230113
  Serious: Yes (Other)
  Sender: FDA-Public Use
  Company Number: CA-ABBVIE-4134391

PATIENT
  Sex: Female

DRUGS (1)
  1. RINVOQ [Suspect]
     Active Substance: UPADACITINIB
     Indication: Rheumatoid arthritis
     Route: 048
     Dates: start: 2022, end: 202209

REACTIONS (9)
  - Loss of consciousness [Unknown]
  - Walking aid user [Unknown]
  - Joint range of motion decreased [Unknown]
  - Synovial cyst [Unknown]
  - Stress [Unknown]
  - Tearfulness [Unknown]
  - Fall [Unknown]
  - Muscle spasms [Unknown]
  - Sciatica [Unknown]

NARRATIVE: CASE EVENT DATE: 20220101
